FAERS Safety Report 12209658 (Version 1)
Quarter: 2016Q1

REPORT INFORMATION
  Report Type: Spontaneous
  Country: DE (occurrence: DE)
  Receive Date: 20160325
  Receipt Date: 20160325
  Transmission Date: 20160526
  Serious: Yes (Death)
  Sender: FDA-Public Use
  Company Number: DE-ROCHE-1731061

PATIENT
  Age: 51 Year
  Sex: Female

DRUGS (5)
  1. AVASTIN [Suspect]
     Active Substance: BEVACIZUMAB
     Indication: BREAST CANCER METASTATIC
     Route: 042
     Dates: start: 20160119, end: 20160119
  2. CAPECITABINE. [Concomitant]
     Active Substance: CAPECITABINE
     Indication: BREAST CANCER METASTATIC
     Route: 048
     Dates: start: 20151221, end: 20160119
  3. DEXAMETHASON [Concomitant]
     Active Substance: DEXAMETHASONE
     Indication: LYMPHANGIOSIS CARCINOMATOSA
     Route: 042
     Dates: start: 20160115, end: 20160207
  4. ZOMETA [Concomitant]
     Active Substance: ZOLEDRONIC ACID
     Indication: METASTASES TO BONE
     Route: 042
     Dates: start: 20160119, end: 20160119
  5. CAPECITABINE. [Concomitant]
     Active Substance: CAPECITABINE
     Route: 048
     Dates: start: 20160201, end: 20160205

REACTIONS (2)
  - Pulmonary oedema [Fatal]
  - Aortic dissection [Fatal]

NARRATIVE: CASE EVENT DATE: 20160205
